FAERS Safety Report 8873275 (Version 1)
Quarter: 2012Q4

REPORT INFORMATION
  Report Type: 
  Country: US (occurrence: US)
  Receive Date: 20121029
  Receipt Date: 20121029
  Transmission Date: 20130627
  Serious: Yes (Other)
  Sender: FDA-Public Use
  Company Number: CHPA2012US022221

PATIENT
  Age: 81 Year
  Sex: Female

DRUGS (1)
  1. GAS-X [Suspect]
     Indication: FLATULENCE
     Dosage: Unk, QD
     Route: 048
     Dates: start: 2006, end: 20121017

REACTIONS (1)
  - Joint injury [Recovered/Resolved]
